FAERS Safety Report 6969901-4 (Version None)
Quarter: 2010Q3

REPORT INFORMATION
  Report Type: 
  Country: None (occurrence: None)
  Receive Date: 20100908
  Receipt Date: 20100830
  Transmission Date: 20110219
  Serious: Yes (Hospitalization)
  Sender: FDA-Public Use
  Company Number: US-TEVA-246695USA

PATIENT
  Age: 72 Year
  Sex: Female

DRUGS (2)
  1. LEFLUNOMIDE TABLET 10MG,20MG [Suspect]
     Indication: RHEUMATOID ARTHRITIS
  2. GALENIC /FLUTICASONE/SALMETEROL/ [Suspect]

REACTIONS (1)
  - BRONCHITIS FUNGAL [None]
